FAERS Safety Report 8297835-4 (Version None)
Quarter: 2012Q2

REPORT INFORMATION
  Report Type: 
  Country: None (occurrence: None)
  Receive Date: 20120419
  Receipt Date: 20120410
  Transmission Date: 20120825
  Serious: Yes (Other)
  Sender: FDA-Public Use
  Company Number: DE-JNJFOC-20111209236

PATIENT
  Sex: Male
  Weight: 67 kg

DRUGS (11)
  1. SIMVASTATIN [Concomitant]
     Indication: CORONARY ARTERY DISEASE
     Route: 048
  2. PREDNISONE TAB [Concomitant]
     Indication: PROSTATE CANCER METASTATIC
     Route: 048
     Dates: start: 20111015, end: 20111214
  3. XIMOVAN [Concomitant]
     Indication: PRODUCT USED FOR UNKNOWN INDICATION
     Route: 065
  4. ZYTIGA [Suspect]
     Indication: PROSTATE CANCER METASTATIC
     Route: 048
  5. PALLADONE [Concomitant]
     Indication: PAIN
     Route: 048
  6. DIPYRONE TAB [Concomitant]
     Indication: PAIN
     Route: 048
  7. METOPROLOL TARTRATE AND HYDROCHLOROTHIAZIDE [Concomitant]
     Indication: HYPERTENSION
     Route: 048
  8. PANTOPRAZOLE [Concomitant]
     Indication: GASTROINTESTINAL DISORDER THERAPY
     Route: 048
  9. ZYTIGA [Suspect]
     Route: 048
     Dates: start: 20111015, end: 20111214
  10. ERGOCALCIFEROL [Concomitant]
     Indication: OSTEOPOROSIS
     Route: 048
  11. INNOHEP [Concomitant]
     Indication: THROMBOSIS
     Route: 065

REACTIONS (2)
  - WEIGHT DECREASED [None]
  - MANIA [None]
